FAERS Safety Report 14378377 (Version 1)
Quarter: 2018Q1

REPORT INFORMATION
  Report Type: Spontaneous
  Country: CA (occurrence: CA)
  Receive Date: 20180111
  Receipt Date: 20180111
  Transmission Date: 20180509
  Serious: Yes (Other)
  Sender: FDA-Public Use
  Company Number: CA-SA-2017SA268369

PATIENT
  Age: 47 Year
  Sex: Female
  Weight: 121 kg

DRUGS (15)
  1. ETANERCEPT [Suspect]
     Active Substance: ETANERCEPT
     Route: 058
  2. BISOPROLOL [Concomitant]
     Active Substance: BISOPROLOL
     Route: 065
  3. PREDNISONE. [Concomitant]
     Active Substance: PREDNISONE
     Route: 065
  4. AZATHIOPRINE. [Suspect]
     Active Substance: AZATHIOPRINE
     Route: 065
  5. LEFLUNOMIDE. [Suspect]
     Active Substance: LEFLUNOMIDE
     Route: 048
  6. ACTEMRA [Suspect]
     Active Substance: TOCILIZUMAB
     Route: 065
  7. ABATACEPT [Suspect]
     Active Substance: ABATACEPT
     Route: 058
  8. TOFACITINIB [Suspect]
     Active Substance: TOFACITINIB
     Route: 065
  9. PANTOPRAZOLE [Concomitant]
     Active Substance: PANTOPRAZOLE
     Route: 065
  10. TEMAZEPAM. [Concomitant]
     Active Substance: TEMAZEPAM
     Route: 065
  11. ACETAMINOPHEN AND CODEINE [Concomitant]
     Active Substance: ACETAMINOPHEN\CODEINE PHOSPHATE
     Route: 065
  12. DEXAMETHASONE. [Concomitant]
     Active Substance: DEXAMETHASONE
     Route: 065
  13. FOLIC ACID. [Concomitant]
     Active Substance: FOLIC ACID
     Route: 065
  14. METHOTREXATE. [Suspect]
     Active Substance: METHOTREXATE
     Route: 058
  15. HYDROXYCHLOROQUINE [Concomitant]
     Active Substance: HYDROXYCHLOROQUINE

REACTIONS (12)
  - Sjogren^s syndrome [Unknown]
  - Hepatic enzyme increased [Unknown]
  - Rash [Unknown]
  - Malaise [Unknown]
  - Treatment failure [Unknown]
  - Lymphadenopathy [Unknown]
  - Drug ineffective [Unknown]
  - Joint swelling [Unknown]
  - Thiopurine methyltransferase decreased [Unknown]
  - Arthralgia [Unknown]
  - Headache [Unknown]
  - Musculoskeletal stiffness [Unknown]
